FAERS Safety Report 6445977-8 (Version None)
Quarter: 2009Q4

REPORT INFORMATION
  Report Type: 
  Country: None (occurrence: None)
  Receive Date: 20091119
  Receipt Date: 20090915
  Transmission Date: 20100525
  Serious: No
  Sender: FDA-Public Use
  Company Number: A0783753A

PATIENT
  Age: 33 Year
  Sex: Male

DRUGS (3)
  1. BUPROPION HYDROCHLORIDE [Suspect]
     Dosage: 150MG PER DAY
     Route: 048
     Dates: start: 20090501, end: 20090503
  2. ROBAXIN [Concomitant]
  3. STEROID [Concomitant]

REACTIONS (2)
  - AGITATION [None]
  - ANGER [None]
